FAERS Safety Report 7946851-8 (Version None)
Quarter: 2011Q4

REPORT INFORMATION
  Report Type: 
  Country: None (occurrence: None)
  Receive Date: 20111129
  Receipt Date: 20111122
  Transmission Date: 20120403
  Serious: Yes (Hospitalization)
  Sender: FDA-Public Use
  Company Number: PHHY2011IT96673

PATIENT
  Sex: Male

DRUGS (3)
  1. VOLTAREN [Suspect]
     Indication: ARTHRALGIA
     Dosage: 1 DF (1 POSOLOGICAL UNIT)
     Route: 048
     Dates: start: 20110930, end: 20111019
  2. AIRTAL [Suspect]
     Indication: ARTHRALGIA
     Dosage: 1 DF (1 POSOLOGICAL UNIT)
     Route: 048
     Dates: start: 20110910, end: 20110919
  3. KETOPROFEN [Suspect]
     Indication: ARTHRALGIA
     Dosage: 1 DF, PRN
     Route: 048
     Dates: start: 20110930, end: 20111019

REACTIONS (4)
  - REFUSAL OF TREATMENT BY PATIENT [None]
  - ABDOMINAL PAIN [None]
  - DRUG ABUSE [None]
  - HAEMATEMESIS [None]
